FAERS Safety Report 18731422 (Version 1)
Quarter: 2021Q1

REPORT INFORMATION
  Report Type: Spontaneous
  Country: CA (occurrence: CA)
  Receive Date: 20210112
  Receipt Date: 20210112
  Transmission Date: 20210419
  Serious: Yes (Death, Hospitalization)
  Sender: FDA-Public Use
  Company Number: CA-TEVA-2021-CA-1866479

PATIENT
  Sex: Male
  Weight: 105 kg

DRUGS (13)
  1. ESBRIET [Suspect]
     Active Substance: PIRFENIDONE
     Indication: IDIOPATHIC PULMONARY FIBROSIS
     Dosage: 801 MILLIGRAM DAILY;
     Route: 048
  2. CYMBALTA [Concomitant]
     Active Substance: DULOXETINE HYDROCHLORIDE
  3. PANTOPRAZOLE [Concomitant]
     Active Substance: PANTOPRAZOLE
  4. FENTANYL. [Suspect]
     Active Substance: FENTANYL
     Indication: NEUROPATHY PERIPHERAL
     Route: 065
  5. ACETYLSALICYLIC ACID [Concomitant]
     Active Substance: ASPIRIN
     Route: 065
  6. CLOPIDOGREL BISULFATE. [Concomitant]
     Active Substance: CLOPIDOGREL BISULFATE
  7. EZETROL [Concomitant]
     Active Substance: EZETIMIBE
  8. LASIX [Concomitant]
     Active Substance: FUROSEMIDE
  9. GABAPENTIN. [Concomitant]
     Active Substance: GABAPENTIN
  10. SPIRIVA [Concomitant]
     Active Substance: TIOTROPIUM BROMIDE MONOHYDRATE
     Route: 065
  11. BUDESONIDE. [Concomitant]
     Active Substance: BUDESONIDE
  12. SALBUTAMOL [Concomitant]
     Active Substance: ALBUTEROL
  13. FENTANYL. [Suspect]
     Active Substance: FENTANYL
     Indication: ARTHRALGIA

REACTIONS (9)
  - Dizziness [Fatal]
  - Oxygen saturation decreased [Fatal]
  - Dyspnoea [Fatal]
  - Fall [Fatal]
  - Cardiac failure congestive [Fatal]
  - Visual impairment [Fatal]
  - Angina unstable [Fatal]
  - Chest pain [Fatal]
  - Angina pectoris [Fatal]
